FAERS Safety Report 7387093-7 (Version None)
Quarter: 2011Q1

REPORT INFORMATION
  Report Type: 
  Country: None (occurrence: None)
  Receive Date: 20110331
  Receipt Date: 20110322
  Transmission Date: 20110831
  Serious: Yes (Hospitalization, Other)
  Sender: FDA-Public Use
  Company Number: US-ASTRAZENECA-2011SE16390

PATIENT
  Sex: Male

DRUGS (2)
  1. PLAVIX [Interacting]
     Route: 065
  2. PRILOSEC OTC [Suspect]
     Route: 048

REACTIONS (4)
  - MYOCARDIAL INFARCTION [None]
  - CONVULSION [None]
  - DRUG INTERACTION [None]
  - THROMBOSIS [None]
